FAERS Safety Report 8783022 (Version 1)
Quarter: 2012Q4

REPORT INFORMATION
  Report Type: 
  Country: IL (occurrence: IL)
  Receive Date: 20120913
  Receipt Date: 20120913
  Transmission Date: 20130627
  Serious: Yes (Other)
  Sender: FDA-Public Use
  Company Number: IL-BRISTOL-MYERS SQUIBB COMPANY-16936809

PATIENT
  Age: 30 Year
  Sex: Female

DRUGS (2)
  1. ABILIFY [Suspect]
     Dosage: Switched from 140 mg/day to 15 mg/day
     Route: 048
  2. GEODON [Suspect]

REACTIONS (1)
  - Psychotic disorder [Unknown]
